FAERS Safety Report 18509545 (Version 2)
Quarter: 2021Q3

REPORT INFORMATION
  Report Type: Spontaneous
  Country: US (occurrence: US)
  Receive Date: 20201117
  Receipt Date: 20210803
  Transmission Date: 20211014
  Serious: Yes (Other)
  Sender: FDA-Public Use
  Company Number: US-SA-2020SA323344

PATIENT
  Age: 41 Year
  Sex: Male

DRUGS (2)
  1. ZANTAC [Suspect]
     Active Substance: RANITIDINE HYDROCHLORIDE
     Dosage: 150 MG, QW
     Dates: end: 201002
  2. ZANTAC [Suspect]
     Active Substance: RANITIDINE HYDROCHLORIDE
     Indication: DYSPEPSIA
     Dosage: 75 MG, QW
     Dates: start: 199101

REACTIONS (3)
  - Colorectal cancer stage II [Unknown]
  - Testis cancer [Unknown]
  - Gastric cancer stage II [Unknown]

NARRATIVE: CASE EVENT DATE: 20130201
